FAERS Safety Report 4915307-9 (Version None)
Quarter: 2006Q1

REPORT INFORMATION
  Report Type: 
  Country: None (occurrence: None)
  Receive Date: 20060217
  Receipt Date: 20051007
  Transmission Date: 20060701
  Serious: Yes (Hospitalization)
  Sender: FDA-Public Use
  Company Number: JP-GLAXOSMITHKLINE-B0396924A

PATIENT
  Age: 54 Year
  Sex: Male

DRUGS (5)
  1. EPIVIR [Suspect]
     Indication: HIV INFECTION
     Dosage: 150MG TWICE PER DAY
     Route: 048
     Dates: start: 20040816
  2. STOCRIN [Suspect]
     Indication: HIV INFECTION
     Route: 048
     Dates: start: 20040816
  3. VIREAD [Suspect]
     Indication: HIV INFECTION
     Dosage: 300MG PER DAY
     Route: 048
     Dates: start: 20040816
  4. ZITHROMAC [Concomitant]
     Route: 048
     Dates: start: 20040805, end: 20041008
  5. COTRIM [Concomitant]
     Route: 048
     Dates: start: 20050308

REACTIONS (4)
  - ANOREXIA [None]
  - DYSPNOEA [None]
  - IMMUNE RECONSTITUTION SYNDROME [None]
  - MYCOBACTERIUM AVIUM COMPLEX INFECTION [None]
